FAERS Safety Report 7646670-6 (Version None)
Quarter: 2011Q3

REPORT INFORMATION
  Report Type: 
  Country: None (occurrence: None)
  Receive Date: 20110729
  Receipt Date: 20110729
  Transmission Date: 20111222
  Serious: Yes (Life-Threatening, Disabling)
  Sender: FDA-Public Use
  Company Number: None

PATIENT
  Sex: Male
  Weight: 86.1834 kg

DRUGS (1)
  1. INVEGA SUSTENNA [Suspect]
     Dosage: ONCE A MONTH

REACTIONS (14)
  - MUSCLE SPASMS [None]
  - MUSCULOSKELETAL STIFFNESS [None]
  - HYPERHIDROSIS [None]
  - DYSURIA [None]
  - VISUAL IMPAIRMENT [None]
  - SYNCOPE [None]
  - HEART RATE IRREGULAR [None]
  - MOOD SWINGS [None]
  - MUSCLE TWITCHING [None]
  - PAIN [None]
  - SALIVARY HYPERSECRETION [None]
  - DYSPNOEA [None]
  - CHEST PAIN [None]
  - ASTHENIA [None]
